FAERS Safety Report 17110878 (Version 1)
Quarter: 2019Q4

REPORT INFORMATION
  Report Type: Spontaneous
  Country: DE (occurrence: DE)
  Receive Date: 20191204
  Receipt Date: 20191204
  Transmission Date: 20200122
  Serious: Yes (Other)
  Sender: FDA-Public Use
  Company Number: DE-MYLANLABS-2019M1117817

PATIENT
  Age: 39 Year
  Sex: Female
  Weight: 55 kg

DRUGS (1)
  1. MIRTAZAPINE. [Suspect]
     Active Substance: MIRTAZAPINE
     Indication: SLEEP DISORDER
     Dosage: UNK
     Route: 048
     Dates: start: 201906, end: 201909

REACTIONS (8)
  - Anxiety [Unknown]
  - Drug withdrawal convulsions [Recovering/Resolving]
  - Depression [Recovered/Resolved]
  - Visual impairment [Unknown]
  - Withdrawal syndrome [Recovering/Resolving]
  - Headache [Unknown]
  - Affect lability [Unknown]
  - Restlessness [Unknown]

NARRATIVE: CASE EVENT DATE: 201910
